APPROVED DRUG PRODUCT: CAFFEINE CITRATE
Active Ingredient: CAFFEINE CITRATE
Strength: EQ 30MG BASE/3ML (EQ 10MG BASE/ML)
Dosage Form/Route: SOLUTION;ORAL
Application: A213202 | Product #001 | TE Code: AA
Applicant: MICRO LABS LTD
Approved: Dec 16, 2019 | RLD: No | RS: No | Type: RX